FAERS Safety Report 5690718-5 (Version None)
Quarter: 2008Q2

REPORT INFORMATION
  Report Type: 
  Country: None (occurrence: None)
  Receive Date: 20080401
  Receipt Date: 20080324
  Transmission Date: 20081010
  Serious: Yes (Hospitalization)
  Sender: FDA-Public Use
  Company Number: US-ELI_LILLY_AND_COMPANY-US200802006221

PATIENT
  Sex: Female

DRUGS (6)
  1. CYMBALTA [Suspect]
     Dosage: 60 MG, DAILY (1/D)
  2. PAXIL CR [Concomitant]
     Indication: DEPRESSION
     Dosage: 37.5 MG, DAILY (1/D)
     Dates: start: 20070718, end: 20070918
  3. ELAVIL [Concomitant]
     Dosage: 1 D/F, UNK
  4. BENADRYL [Concomitant]
     Dosage: 1 D/F, UNK
  5. RHINOCORT [Concomitant]
  6. LAMICTAL [Concomitant]
     Dosage: 1 D/F, UNK
     Dates: start: 20080101

REACTIONS (1)
  - HOSPITALISATION [None]
